FAERS Safety Report 13999148 (Version 3)
Quarter: 2017Q4

REPORT INFORMATION
  Report Type: Spontaneous
  Country: GB (occurrence: GB)
  Receive Date: 20170922
  Receipt Date: 20171031
  Transmission Date: 20180321
  Serious: Yes (Disabling, Other)
  Sender: FDA-Public Use
  Company Number: GB-TEVA-804374ACC

PATIENT
  Age: 28 Year
  Sex: Male
  Weight: 59 kg

DRUGS (9)
  1. OMEPRAZOLE. [Concomitant]
     Active Substance: OMEPRAZOLE
     Route: 048
  2. LOPERAMIDE [Concomitant]
     Active Substance: LOPERAMIDE
     Route: 048
  3. BUSCOPAN [Concomitant]
     Active Substance: BUTYLSCOPOLAMINE BROMIDE
     Route: 048
  4. FERROUS SULFATE. [Concomitant]
     Active Substance: FERROUS SULFATE
     Route: 048
  5. CITRAZINE [Concomitant]
     Route: 048
  6. FENTANYL. [Concomitant]
     Active Substance: FENTANYL
     Route: 002
  7. ENSURE PLUS 1 [Concomitant]
     Route: 048
  8. EFFENTORA [Suspect]
     Active Substance: FENTANYL CITRATE
     Indication: BREAKTHROUGH PAIN
     Dosage: 800 MICROGRAM DAILY;
     Route: 065
     Dates: start: 20170307
  9. EFFENTORA [Suspect]
     Active Substance: FENTANYL CITRATE
     Dosage: 800 MICROGRAM DAILY;
     Route: 065
     Dates: start: 20160513, end: 20170307

REACTIONS (2)
  - Memory impairment [Not Recovered/Not Resolved]
  - Amnesia [Not Recovered/Not Resolved]

NARRATIVE: CASE EVENT DATE: 20160513
